FAERS Safety Report 6166523-2 (Version None)
Quarter: 2009Q2

REPORT INFORMATION
  Report Type: 
  Country: None (occurrence: None)
  Receive Date: 20090422
  Receipt Date: 20090422
  Transmission Date: 20091009
  Serious: Yes (Life-Threatening, Other)
  Sender: FDA-Public Use
  Company Number: None

PATIENT
  Age: 42 Year
  Sex: Male
  Weight: 113.3993 kg

DRUGS (1)
  1. BUPROPION HCL 150 MG GLOBAL PHARM [Suspect]
     Indication: DEPRESSION
     Dosage: 450 MG DAILY PO
     Route: 048
     Dates: start: 20090110, end: 20090410

REACTIONS (3)
  - DEPRESSION [None]
  - FATIGUE [None]
  - SUICIDAL IDEATION [None]
